FAERS Safety Report 8602627-X (Version None)
Quarter: 2012Q3

REPORT INFORMATION
  Report Type: 
  Country: None (occurrence: None)
  Receive Date: 20120817
  Receipt Date: 19891106
  Transmission Date: 20120928
  Serious: Yes (Other)
  Sender: FDA-Public Use
  Company Number: US-ROCHE-1100508

PATIENT
  Age: 32 Year
  Sex: Male

DRUGS (3)
  1. ACTIVASE [Suspect]
     Indication: ACUTE MYOCARDIAL INFARCTION
  2. LIDOCAINE [Concomitant]
  3. ATROPINE [Concomitant]
     Route: 042

REACTIONS (2)
  - CHEST PAIN [None]
  - NAUSEA [None]
